FAERS Safety Report 8289937-3 (Version None)
Quarter: 2012Q2

REPORT INFORMATION
  Report Type: 
  Country: None (occurrence: None)
  Receive Date: 20120417
  Receipt Date: 20120413
  Transmission Date: 20120825
  Serious: No
  Sender: FDA-Public Use
  Company Number: US-TEVA-333440USA

PATIENT
  Sex: Female

DRUGS (2)
  1. PRINZIDE [Concomitant]
     Indication: HYPERTENSION
     Dosage: 20/12.5 MG DAILY
     Route: 048
  2. COPAXONE [Suspect]
     Indication: MULTIPLE SCLEROSIS
     Route: 058
     Dates: start: 19970101

REACTIONS (2)
  - ALOPECIA [None]
  - ONYCHOCLASIS [None]
